FAERS Safety Report 24441676 (Version 2)
Quarter: 2024Q4

REPORT INFORMATION
  Report Type: Report from Study
  Country: US (occurrence: US)
  Receive Date: 20241016
  Receipt Date: 20241017
  Transmission Date: 20250115
  Serious: No
  Sender: ROCHE
  Company Number: US-ROCHE-3504432

PATIENT
  Age: 2 Year
  Sex: Male
  Weight: 11.9 kg

DRUGS (6)
  1. HEMLIBRA [Suspect]
     Active Substance: EMICIZUMAB-KXWH
     Indication: Factor VIII deficiency
     Dosage: DOSE 60 MG X 4, DATE OF SERVICE: 01/FEB/2024
     Route: 065
  2. ACETAMINOPHEN [Concomitant]
     Active Substance: ACETAMINOPHEN
     Dosage: 160 MG/5ML SUSPENSION
  3. AMINOCAPROIC ACID [Concomitant]
     Active Substance: AMINOCAPROIC ACID
     Dosage: 0.25 GM/ML SOLUTION
  4. FERROUS SULFATE [Concomitant]
     Active Substance: FERROUS SULFATE
     Dosage: 75 MG/ML SOLUTION
  5. FOLIC ACID [Concomitant]
     Active Substance: FOLIC ACID
     Dosage: 100MCG/ML SUSPENSION
  6. IBUPROFEN [Concomitant]
     Active Substance: IBUPROFEN
     Dosage: 100MG/5ML SUSPENSION

REACTIONS (2)
  - Off label use [Unknown]
  - No adverse event [Unknown]
